FAERS Safety Report 23335778 (Version 1)
Quarter: 2023Q4

REPORT INFORMATION
  Report Type: Other
  Country: DE (occurrence: None)
  Receive Date: 20231225
  Receipt Date: 20231225
  Transmission Date: 20240109
  Serious: No
  Sender: FDA-Public Use
  Company Number: DE-ROCHE-3477715

PATIENT
  Sex: Male

DRUGS (1)
  1. OCREVUS [Suspect]
     Active Substance: OCRELIZUMAB
     Indication: Multiple sclerosis
     Dosage: ON 02/NOV/2022, HE RECEIVED MOST RECENT DOSE (PRIOR TO EVENT): 600MG
     Route: 042
     Dates: start: 20181022

REACTIONS (2)
  - COVID-19 [Unknown]
  - Pneumonia [Unknown]
